FAERS Safety Report 10557111 (Version 1)
Quarter: 2014Q4

REPORT INFORMATION
  Report Type: Spontaneous
  Country: FR (occurrence: FR)
  Receive Date: 20141031
  Receipt Date: 20141031
  Transmission Date: 20150529
  Serious: Yes (Hospitalization)
  Sender: FDA-Public Use
  Company Number: FR-SA-2014SA147642

PATIENT
  Age: 81 Year
  Sex: Female

DRUGS (9)
  1. BISOCE [Suspect]
     Active Substance: BISOPROLOL
     Route: 065
  2. GLICLAZIDE [Concomitant]
     Active Substance: GLICLAZIDE
     Dates: end: 201405
  3. LASILIX [Suspect]
     Active Substance: FUROSEMIDE
     Route: 065
  4. COUMADINE [Concomitant]
     Active Substance: WARFARIN SODIUM
  5. STILNOX [Suspect]
     Active Substance: ZOLPIDEM TARTRATE
     Route: 065
  6. CORDARONE [Suspect]
     Active Substance: AMIODARONE HYDROCHLORIDE
     Route: 065
  7. STABLON [Suspect]
     Active Substance: TIANEPTINE
     Route: 065
     Dates: end: 201405
  8. PERINDOPRIL [Suspect]
     Active Substance: PERINDOPRIL
     Route: 065
     Dates: end: 201405
  9. METFORMIN HYDROCHLORIDE. [Concomitant]
     Active Substance: METFORMIN HYDROCHLORIDE

REACTIONS (4)
  - Loss of consciousness [Recovered/Resolved]
  - Fall [Unknown]
  - Craniocerebral injury [Recovered/Resolved]
  - Orthostatic hypotension [Recovered/Resolved]

NARRATIVE: CASE EVENT DATE: 20140420
